FAERS Safety Report 4720512-0 (Version None)
Quarter: 2005Q3

REPORT INFORMATION
  Report Type: 
  Country: None (occurrence: None)
  Receive Date: 20050721
  Receipt Date: 20050401
  Transmission Date: 20060218
  Serious: Yes (Other)
  Sender: FDA-Public Use
  Company Number: US-BRISTOL-MYERS SQUIBB COMPANY-12918272

PATIENT
  Age: 47 Year
  Sex: Male
  Weight: 94 kg

DRUGS (3)
  1. GLUCOVANCE [Suspect]
     Indication: DIABETES MELLITUS
     Route: 048
     Dates: start: 20050324, end: 20050404
  2. PRINZIDE [Concomitant]
     Dosage: DOSAGE FORM = 20/25
  3. ASPIRIN [Concomitant]

REACTIONS (1)
  - BLOOD GLUCOSE INCREASED [None]
